FAERS Safety Report 5983955-3 (Version None)
Quarter: 2008Q4

REPORT INFORMATION
  Report Type: 
  Country: None (occurrence: None)
  Receive Date: 20081208
  Receipt Date: 20081125
  Transmission Date: 20090506
  Serious: Yes (Life-Threatening)
  Sender: FDA-Public Use
  Company Number: AU-ROCHE-599540

PATIENT
  Sex: Male
  Weight: 69.3 kg

DRUGS (1)
  1. CAPECITABINE [Suspect]
     Indication: COLON CANCER
     Dosage: STRENGTH AND FORM AS PER PROTOCOL. 1250 MG/M2 TWICE DAILY FOR 14 DAYS AS PER PROTOCOL.
     Route: 048
     Dates: start: 20070704

REACTIONS (1)
  - REFRACTORY ANAEMIA WITH AN EXCESS OF BLASTS [None]
